FAERS Safety Report 8180277-X (Version None)
Quarter: 2012Q1

REPORT INFORMATION
  Report Type: 
  Country: None (occurrence: None)
  Receive Date: 20120302
  Receipt Date: 20120222
  Transmission Date: 20120608
  Serious: Yes (Hospitalization)
  Sender: FDA-Public Use
  Company Number: PHHY2011ES54899

PATIENT
  Age: 54 Year
  Sex: Female

DRUGS (4)
  1. AKINETON [Suspect]
     Indication: SCHIZOPHRENIA
     Dosage: 6 MG/DAY
     Dates: start: 19960101, end: 20110201
  2. SOLIAN [Suspect]
     Indication: SCHIZOPHRENIA
     Dosage: 800 MG, QD
     Route: 048
     Dates: start: 19960101, end: 20110201
  3. CLOZAPINE [Suspect]
     Indication: SCHIZOPHRENIA
     Dosage: 400 MG/DAY
     Route: 048
     Dates: start: 19960101, end: 20110201
  4. LORAZEPAM [Suspect]
     Dosage: 7.5 MG/DAY
     Route: 048
     Dates: start: 19990101

REACTIONS (8)
  - ABDOMINAL PAIN [None]
  - ELECTROCARDIOGRAM T WAVE ABNORMAL [None]
  - HYPOCHLORAEMIA [None]
  - ALKALOSIS [None]
  - VOMITING [None]
  - GASTROINTESTINAL HYPOMOTILITY [None]
  - HYPOKALAEMIA [None]
  - METABOLIC ALKALOSIS [None]
